FAERS Safety Report 11200489 (Version 1)
Quarter: 2015Q2

REPORT INFORMATION
  Report Type: Spontaneous
  Country: FR (occurrence: FR)
  Receive Date: 20150618
  Receipt Date: 20150618
  Transmission Date: 20150821
  Serious: Yes (Disabling)
  Sender: FDA-Public Use
  Company Number: FR-SA-2015SA083333

PATIENT
  Age: 30 Year
  Sex: Female

DRUGS (5)
  1. MENOPUR [Suspect]
     Active Substance: FOLLICLE STIMULATING HORMONE BETA POLYPEPTIDE\LUTROPIN ALFA
     Indication: OVULATION INDUCTION
     Dosage: MENOPUR 600
     Route: 058
     Dates: start: 201409, end: 201501
  2. CLOMID [Suspect]
     Active Substance: CLOMIPHENE CITRATE
     Indication: OVULATION INDUCTION
     Route: 048
     Dates: start: 201402, end: 201502
  3. GONAL-F [Suspect]
     Active Substance: FOLLITROPIN
     Indication: OVULATION INDUCTION
     Dosage: GONAL-F 300, GONAL-F 450, GONAL-F 900
     Route: 058
     Dates: start: 201409, end: 201501
  4. ORGALUTRAN [Suspect]
     Active Substance: GANIRELIX ACETATE
     Indication: OVULATION INDUCTION
     Route: 058
     Dates: start: 201409, end: 201501
  5. OVITRELLE [Suspect]
     Active Substance: CHORIOGONADOTROPIN ALFA
     Indication: OVULATION INDUCTION
     Dosage: OVITERELLE 15 SEP-2014, 16-OCT-2014, 17-NOV-2014
     Route: 058
     Dates: start: 201409, end: 201501

REACTIONS (1)
  - Multiple sclerosis relapse [Recovered/Resolved with Sequelae]

NARRATIVE: CASE EVENT DATE: 201502
